FAERS Safety Report 4703321-8 (Version None)
Quarter: 2005Q2

REPORT INFORMATION
  Report Type: 
  Country: None (occurrence: None)
  Receive Date: 20050624
  Receipt Date: 20050414
  Transmission Date: 20051028
  Serious: No
  Sender: FDA-Public Use
  Company Number: 2005BI008046

PATIENT
  Age: 45 Year
  Sex: Female

DRUGS (2)
  1. NATALIZUMAB [Suspect]
     Indication: MULTIPLE SCLEROSIS
     Dosage: 300 MG; QM; IV
     Route: 042
     Dates: start: 20050109, end: 20050209
  2. AVONEX [Suspect]
     Indication: MULTIPLE SCLEROSIS
     Dosage: 30 UG; QW; IM
     Route: 030
     Dates: end: 20050409

REACTIONS (7)
  - CONTUSION [None]
  - FATIGUE [None]
  - HYPOAESTHESIA [None]
  - IMPAIRED HEALING [None]
  - INFLUENZA LIKE ILLNESS [None]
  - MEMORY IMPAIRMENT [None]
  - OPTIC NEURITIS [None]
